FAERS Safety Report 8401985-9 (Version None)
Quarter: 2012Q2

REPORT INFORMATION
  Report Type: 
  Country: None (occurrence: None)
  Receive Date: 20120601
  Receipt Date: 20120528
  Transmission Date: 20120825
  Serious: Yes (Other)
  Sender: FDA-Public Use
  Company Number: JP-PFIZER INC-2012124238

PATIENT
  Age: 60 Year
  Sex: Female

DRUGS (3)
  1. LYRICA [Suspect]
     Dosage: 300 MG/DAY
     Route: 048
  2. LEVOTHYROXINE SODIUM [Suspect]
     Indication: GOITRE
     Dosage: 100 MG/DAY
     Route: 048
  3. LYRICA [Suspect]
     Indication: NEURALGIA
     Dosage: 75 MG/DAY
     Route: 048
     Dates: start: 20111115

REACTIONS (1)
  - GOITRE [None]
